FAERS Safety Report 13240209 (Version 1)
Quarter: 2017Q1

REPORT INFORMATION
  Report Type: Report from Study
  Country: US (occurrence: US)
  Receive Date: 20170216
  Receipt Date: 20170216
  Transmission Date: 20170428
  Serious: Yes (Other)
  Sender: FDA-Public Use
  Company Number: US-PFIZER INC-2017062262

PATIENT
  Age: 76 Year
  Sex: Female

DRUGS (2)
  1. IBRANCE [Suspect]
     Active Substance: PALBOCICLIB
     Indication: BREAST CANCER
     Dosage: 100 MG, CYCLIC (DAILY FOR DAY 1-DAY 21)
     Route: 048
     Dates: start: 20160908, end: 20160926
  2. IBRANCE [Suspect]
     Active Substance: PALBOCICLIB
     Dosage: 75 MG, CYCLIC (DAILY FOR DAY 1-DAY 21)
     Route: 048
     Dates: start: 20160927, end: 20170130

REACTIONS (2)
  - Neoplasm progression [Unknown]
  - Bone marrow failure [Unknown]
